FAERS Safety Report 8955483 (Version 1)
Quarter: 2012Q4

REPORT INFORMATION
  Report Type: 
  Country: ES (occurrence: ES)
  Receive Date: 20121207
  Receipt Date: 20121207
  Transmission Date: 20130627
  Serious: Yes (Other)
  Sender: FDA-Public Use
  Company Number: ES-B.I. PHARMACEUTICALS,INC./RIDGEFIELD-2012-ES-00482ES

PATIENT
  Age: 83 Year
  Sex: Male

DRUGS (6)
  1. TRAJENTA [Suspect]
     Indication: DIABETES MELLITUS
     Dosage: 5 mg
     Route: 048
     Dates: start: 201205, end: 201210
  2. METFORMIN [Concomitant]
     Indication: DIABETES MELLITUS
     Dosage: 2550 mg
     Route: 048
     Dates: end: 201205
  3. SIMVASTATINA [Concomitant]
     Indication: HYPERLIPIDAEMIA
     Dosage: 10 mg
     Route: 048
  4. ADIRO [Concomitant]
     Dosage: 100 mg
     Route: 048
  5. COAPROVEL [Concomitant]
     Indication: HYPERTENSION
     Dosage: 300/12.5mg
     Route: 048
  6. DIAMICRON [Concomitant]
     Indication: DIABETES MELLITUS
     Dosage: 15 mg
     Route: 048

REACTIONS (1)
  - Renal impairment [Unknown]
